FAERS Safety Report 19504237 (Version 1)
Quarter: 2021Q3

REPORT INFORMATION
  Report Type: Spontaneous
  Country: US (occurrence: US)
  Receive Date: 20210708
  Receipt Date: 20210708
  Transmission Date: 20211014
  Serious: Yes (Hospitalization, Other)
  Sender: FDA-Public Use
  Company Number: US-ROCHE-2510488

PATIENT
  Age: 54 Year
  Sex: Female
  Weight: 83.99 kg

DRUGS (6)
  1. LISINOPRIL. [Concomitant]
     Active Substance: LISINOPRIL
     Indication: HYPERTENSION
     Dosage: ONGOING: YES
     Route: 048
  2. VENLAFAXINE ER [Suspect]
     Active Substance: VENLAFAXINE HYDROCHLORIDE
     Indication: DEPRESSION
     Route: 048
     Dates: end: 20181009
  3. DIVALPROEX SODIUM. [Concomitant]
     Active Substance: DIVALPROEX SODIUM
     Indication: DEPRESSION
     Dosage: ONGOING: YES
     Route: 048
     Dates: start: 20180101
  4. KLONOPIN [Suspect]
     Active Substance: CLONAZEPAM
     Indication: ANXIETY
     Dosage: ONGOING : NO
     Route: 048
     Dates: end: 2018
  5. KLONOPIN [Suspect]
     Active Substance: CLONAZEPAM
     Dosage: FOR 30 DAYS ;ONGOING: NO
     Route: 048
     Dates: start: 2018, end: 20180804
  6. ATIVAN [Concomitant]
     Active Substance: LORAZEPAM
     Indication: ANXIETY
     Dosage: ONGOING: YES
     Route: 048
     Dates: start: 20190401

REACTIONS (13)
  - Intentional overdose [Recovered/Resolved]
  - Off label use [Unknown]
  - Withdrawal syndrome [Recovered/Resolved]
  - Insomnia [Recovered/Resolved]
  - Mydriasis [Recovered/Resolved]
  - Mental disorder [Recovered/Resolved]
  - Viral infection [Recovered/Resolved]
  - Eye disorder [Not Recovered/Not Resolved]
  - Suicidal behaviour [Recovered/Resolved]
  - Tremor [Recovered/Resolved]
  - Hyperreflexia [Not Recovered/Not Resolved]
  - Musculoskeletal stiffness [Not Recovered/Not Resolved]
  - Anxiety [Recovered/Resolved]

NARRATIVE: CASE EVENT DATE: 201808
